FAERS Safety Report 7267522-X (Version None)
Quarter: 2011Q1

REPORT INFORMATION
  Report Type: 
  Country: None (occurrence: None)
  Receive Date: 20110120
  Receipt Date: 20110105
  Transmission Date: 20110831
  Serious: Yes (Hospitalization)
  Sender: FDA-Public Use
  Company Number: AUR-APL-2011-00071

PATIENT
  Age: 33 Year
  Sex: Male

DRUGS (3)
  1. LOSARTAN POTASSIUM [Suspect]
     Dosage: 100MG-DAILY
  2. ALLOPURINOL [Suspect]
     Indication: HYPERURICAEMIA
     Dosage: 300MG-DAILY
  3. LISINOPRIL [Suspect]
     Dosage: 20MG-DAILY

REACTIONS (10)
  - HYPOVOLAEMIA [None]
  - TACHYCARDIA [None]
  - RENAL IMPAIRMENT [None]
  - ORBITAL OEDEMA [None]
  - BLOOD SODIUM DECREASED [None]
  - TACHYPNOEA [None]
  - LOCAL SWELLING [None]
  - BLOOD POTASSIUM INCREASED [None]
  - HYPOTENSION [None]
  - DRUG RASH WITH EOSINOPHILIA AND SYSTEMIC SYMPTOMS [None]
